FAERS Safety Report 8435357 (Version 3)
Quarter: 2013Q1

REPORT INFORMATION
  Report Type: Spontaneous
  Country: US (occurrence: US)
  Receive Date: 20120301
  Receipt Date: 20130107
  Transmission Date: 20140127
  Serious: Yes (Hospitalization)
  Sender: FDA-Public Use
  Company Number: US-GLAXOSMITHKLINE-A0932367A

PATIENT
  Age: 58 Year
  Sex: Male

DRUGS (1)
  1. AVANDIA [Suspect]
     Indication: DIABETES MELLITUS
     Dosage: 8MG PER DAY
     Route: 048
     Dates: start: 20020916, end: 20060901

REACTIONS (4)
  - Myocardial infarction [Recovering/Resolving]
  - Myocardial ischaemia [Unknown]
  - Atrioventricular block complete [Unknown]
  - Coronary artery disease [Unknown]
